FAERS Safety Report 10051089 (Version 1)
Quarter: 2014Q2

REPORT INFORMATION
  Report Type: Spontaneous
  Country: US (occurrence: US)
  Receive Date: 20140401
  Receipt Date: 20140401
  Transmission Date: 20141212
  Serious: No
  Sender: FDA-Public Use
  Company Number: US-ASTRAZENECA-2013SE48137

PATIENT
  Age: 61 Year
  Sex: Female
  Weight: 74.8 kg

DRUGS (11)
  1. NEXIUM [Suspect]
     Indication: GASTROOESOPHAGEAL REFLUX DISEASE
     Route: 048
     Dates: start: 2003, end: 201306
  2. PRILOSEC [Suspect]
     Indication: GASTROOESOPHAGEAL REFLUX DISEASE
     Route: 048
     Dates: start: 2001, end: 2003
  3. SYNTHROID [Concomitant]
     Dosage: 50MCG
  4. GLUCOPHAGE [Concomitant]
     Dosage: 500MG
     Dates: start: 2010
  5. LISINOPRIL/HCTZ [Concomitant]
     Dosage: 20/25
     Dates: start: 2012
  6. LIPITOR [Concomitant]
     Indication: BLOOD CHOLESTEROL INCREASED
     Dosage: 40MG
  7. WELBUTRIN XL [Concomitant]
     Dosage: 300MG
     Dates: start: 2007
  8. CINAMMON [Concomitant]
  9. ASPIRIN [Concomitant]
     Dosage: 162MG
  10. IRON CAPSULE [Concomitant]
     Dosage: 65MG
  11. ZANTAC [Concomitant]
     Indication: GASTROOESOPHAGEAL REFLUX DISEASE

REACTIONS (6)
  - Dyspepsia [Not Recovered/Not Resolved]
  - Diabetes mellitus [Not Recovered/Not Resolved]
  - Hypertension [Not Recovered/Not Resolved]
  - Insomnia [Not Recovered/Not Resolved]
  - Off label use [Unknown]
  - Drug ineffective [Unknown]
